FAERS Safety Report 18266593 (Version 1)
Quarter: 2020Q3

REPORT INFORMATION
  Report Type: Spontaneous
  Country: NL (occurrence: NL)
  Receive Date: 20200915
  Receipt Date: 20200915
  Transmission Date: 20201103
  Serious: Yes (Life-Threatening)
  Sender: FDA-Public Use
  Company Number: NL-SUN PHARMACEUTICAL INDUSTRIES LTD-2020RR-261048

PATIENT
  Age: 71 Year
  Sex: Male
  Weight: 60 kg

DRUGS (7)
  1. SALBUTAMOL/IPRAT (1?W) VERN 2,5/0,25MG/ML / BRAND NAME NOT SPECIFIE [Concomitant]
     Indication: PRODUCT USED FOR UNKNOWN INDICATION
     Dosage: 1 DOSAGE FORM, ACCORDING TO REGULATIONS
     Route: 050
  2. THIAMINE INJVLST 100MG/ML / BRAND NAME NOT SPECIFIEDTHIAMINE INJVLS [Concomitant]
     Indication: PRODUCT USED FOR UNKNOWN INDICATION
     Dosage: 1 MILLILITER, DAILY, 1DD1 I.M.
     Route: 050
  3. ESOMEPRAZOL TABLET MSR 40MG / BRAND NAME NOT SPECIFIEDESOMEPRAZOL T... [Concomitant]
     Indication: PRODUCT USED FOR UNKNOWN INDICATION
     Dosage: 40 MILLIGRAM, DAILY, 1DD1
     Route: 050
  4. OLANZAPINE. [Suspect]
     Active Substance: OLANZAPINE
     Indication: RESTLESSNESS
     Dosage: 1 DOSAGE FORM, DAILY, 1 PIECE (S) ONCE A DAY
     Route: 050
     Dates: start: 201402, end: 20140728
  5. FYTOMENADION INJVLST 10MG/ML ? NON?CURRENT DRUG / BRAND NAME NOT SP... [Concomitant]
     Indication: PRODUCT USED FOR UNKNOWN INDICATION
     Dosage: 1 MILLILITER, DAILY, 1DD1ML
     Route: 050
  6. MULTIVITAMINEN [Concomitant]
     Indication: PRODUCT USED FOR UNKNOWN INDICATION
     Dosage: 1 DOSAGE FORM, DAILY, 1DD1
     Route: 050
  7. NADROPARINE INJVLST  9500IE/ML / BRAND NAME NOT SPECIFIEDNADROPARIN... [Concomitant]
     Indication: PRODUCT USED FOR UNKNOWN INDICATION
     Dosage: 0.3 MILLILITER, DAILY, 1DD0,3ML
     Route: 050

REACTIONS (1)
  - Catatonia [Recovering/Resolving]

NARRATIVE: CASE EVENT DATE: 20140328
